FAERS Safety Report 18530530 (Version 1)
Quarter: 2020Q4

REPORT INFORMATION
  Report Type: Report from Study
  Country: None (occurrence: US)
  Receive Date: 20201121
  Receipt Date: 20201121
  Transmission Date: 20210114
  Serious: Yes (Other)
  Sender: FDA-Public Use
  Company Number: US-ABBVIE-20K-163-3657567-00

PATIENT
  Sex: Female

DRUGS (1)
  1. SYNTHROID [Suspect]
     Active Substance: LEVOTHYROXINE SODIUM
     Indication: PRODUCT USED FOR UNKNOWN INDICATION
     Route: 048

REACTIONS (7)
  - Cardiac disorder [Unknown]
  - Fear [Unknown]
  - Acute hepatic failure [Unknown]
  - Atrial fibrillation [Unknown]
  - Confusional state [Unknown]
  - Pneumonia [Unknown]
  - Cardiac failure acute [Unknown]
